FAERS Safety Report 6362554-8 (Version None)
Quarter: 2009Q3

REPORT INFORMATION
  Report Type: 
  Country: None (occurrence: None)
  Receive Date: 20090918
  Receipt Date: 20090603
  Transmission Date: 20100115
  Serious: No
  Sender: FDA-Public Use
  Company Number: US-ABBOTT-09P-163-0577841-00

PATIENT
  Sex: Female
  Weight: 97.61 kg

DRUGS (7)
  1. HUMIRA [Suspect]
     Indication: PSORIASIS
     Dates: start: 20090401
  2. TOPRIL [Concomitant]
     Indication: HYPERTENSION
  3. CATAPRES [Concomitant]
     Indication: HYPERTENSION
  4. LASIX [Concomitant]
     Indication: HYPERTENSION
  5. GLUCOTROL [Concomitant]
     Indication: DIABETES MELLITUS
  6. GLUCOPHAGE [Concomitant]
     Indication: DRUG USE FOR UNKNOWN INDICATION
  7. AMBIEN [Concomitant]
     Indication: SLEEP DISORDER THERAPY

REACTIONS (1)
  - PSORIASIS [None]
